FAERS Safety Report 4630251-2 (Version None)
Quarter: 2005Q2

REPORT INFORMATION
  Report Type: 
  Country: None (occurrence: None)
  Receive Date: 20050405
  Receipt Date: 20050405
  Transmission Date: 20051028
  Serious: Yes (Hospitalization)
  Sender: FDA-Public Use
  Company Number: None

PATIENT
  Age: 71 Year
  Sex: Male
  Weight: 95.709 kg

DRUGS (1)
  1. AMOXICILLIN AND CLAVULANATE POTASSIUM [Suspect]
     Dosage: 500/125MG  BID  ORAL
     Route: 048
     Dates: start: 20050325, end: 20050331

REACTIONS (4)
  - BACTERIA STOOL IDENTIFIED [None]
  - BLOOD GLUCOSE INCREASED [None]
  - DIARRHOEA [None]
  - JOINT SWELLING [None]
